FAERS Safety Report 7790378-3 (Version None)
Quarter: 2011Q3

REPORT INFORMATION
  Report Type: 
  Country: None (occurrence: None)
  Receive Date: 20110930
  Receipt Date: 20110927
  Transmission Date: 20111222
  Serious: Yes (Other)
  Sender: FDA-Public Use
  Company Number: CA-ABBOTT-11P-028-0837628-00

PATIENT
  Sex: Male
  Weight: 69.462 kg

DRUGS (2)
  1. KALETRA [Suspect]
     Indication: ANTIRETROVIRAL THERAPY
     Dosage: 200 MG/50 MG, 2 TABS ONCE DAILY
     Route: 048
     Dates: start: 19890101
  2. TRUVADA [Concomitant]
     Indication: PRODUCT USED FOR UNKNOWN INDICATION
     Dosage: 200 MG/300 MG; ONCE DAILY
     Route: 048

REACTIONS (6)
  - DYSPEPSIA [None]
  - ASTHENIA [None]
  - ABDOMINAL PAIN UPPER [None]
  - WEIGHT DECREASED [None]
  - OESOPHAGEAL CARCINOMA [None]
  - DYSPHAGIA [None]
